FAERS Safety Report 7801290-5 (Version None)
Quarter: 2011Q4

REPORT INFORMATION
  Report Type: 
  Country: None (occurrence: None)
  Receive Date: 20111007
  Receipt Date: 20091103
  Transmission Date: 20120403
  Serious: No
  Sender: FDA-Public Use
  Company Number: 2009BI035938

PATIENT
  Sex: Female

DRUGS (2)
  1. TYSABRI [Suspect]
     Indication: MULTIPLE SCLEROSIS
     Route: 042
  2. TYSABRI [Suspect]
     Route: 042
     Dates: start: 20070129

REACTIONS (5)
  - CONFUSIONAL STATE [None]
  - FATIGUE [None]
  - POOR VENOUS ACCESS [None]
  - MULTIPLE SCLEROSIS [None]
  - HEADACHE [None]
